FAERS Safety Report 14178894 (Version 3)
Quarter: 2018Q1

REPORT INFORMATION
  Report Type: Spontaneous
  Country: JP (occurrence: JP)
  Receive Date: 20171110
  Receipt Date: 20180119
  Transmission Date: 20180508
  Serious: Yes (Death, Life-Threatening, Other)
  Sender: FDA-Public Use
  Company Number: JP-PFIZER INC-2017483529

PATIENT
  Age: 37 Year
  Sex: Male

DRUGS (2)
  1. ZOSYN [Suspect]
     Active Substance: PIPERACILLIN SODIUM\TAZOBACTAM SODIUM
     Indication: ENTEROBACTER SEPSIS
  2. ZOSYN [Suspect]
     Active Substance: PIPERACILLIN SODIUM\TAZOBACTAM SODIUM
     Indication: URINARY TRACT INFECTION
     Dosage: UNK

REACTIONS (4)
  - Multiple organ dysfunction syndrome [Fatal]
  - Coagulopathy [Recovering/Resolving]
  - Vitamin K deficiency [Recovering/Resolving]
  - Haemorrhagic diathesis [Recovering/Resolving]
